FAERS Safety Report 7347952-8 (Version None)
Quarter: 2011Q1

REPORT INFORMATION
  Report Type: 
  Country: None (occurrence: None)
  Receive Date: 20110311
  Receipt Date: 20100803
  Transmission Date: 20110831
  Serious: Yes (Hospitalization, Other)
  Sender: FDA-Public Use
  Company Number: US-BAYER-200943862NA

PATIENT
  Sex: Female
  Weight: 91 kg

DRUGS (8)
  1. HYDROCODONE [Concomitant]
     Dosage: 7.5 MG/ 750 MG-
  2. PREDNISONE [Concomitant]
     Indication: PLANTAR FASCIITIS
  3. SINGULAIR [Concomitant]
     Indication: ASTHMA
  4. YASMIN [Suspect]
     Indication: ACNE
     Dates: start: 20071001, end: 20071220
  5. YASMIN [Suspect]
     Indication: PREMENSTRUAL SYNDROME
  6. HYDROCODONE BITARTRATE AND ACETAMINOPHEN [Concomitant]
     Indication: PLANTAR FASCIITIS
     Dosage: 7.5 MG/ 750 MG-
  7. IBUPROFEN [Concomitant]
     Indication: PLANTAR FASCIITIS
     Dosage: 1800 MG (DAILY DOSE), TID,
  8. APAP TAB [Concomitant]

REACTIONS (4)
  - PULMONARY EMBOLISM [None]
  - CHEST PAIN [None]
  - HYPERTENSION [None]
  - DEEP VEIN THROMBOSIS [None]
